FAERS Safety Report 7424428-0 (Version None)
Quarter: 2011Q2

REPORT INFORMATION
  Report Type: 
  Country: None (occurrence: None)
  Receive Date: 20110419
  Receipt Date: 20100927
  Transmission Date: 20111010
  Serious: No
  Sender: FDA-Public Use
  Company Number: US-ABBOTT-09P-163-0567421-00

PATIENT
  Age: 77 Year
  Sex: Female

DRUGS (1)
  1. ZEMPLAR [Suspect]
     Indication: HYPERPARATHYROIDISM
     Dates: start: 20090209, end: 20090211

REACTIONS (2)
  - DIARRHOEA [None]
  - ABDOMINAL PAIN [None]
